FAERS Safety Report 18489721 (Version 1)
Quarter: 2020Q4

REPORT INFORMATION
  Report Type: Spontaneous
  Country: US (occurrence: US)
  Receive Date: 20201110
  Receipt Date: 20201110
  Transmission Date: 20210114
  Serious: No
  Sender: FDA-Public Use
  Company Number: None

PATIENT
  Age: 66 Year
  Sex: Female
  Weight: 81 kg

DRUGS (8)
  1. CALCIUM CARBONATE +D3 [Concomitant]
  2. ECONAZOLE. [Concomitant]
     Active Substance: ECONAZOLE NITRATE
  3. CLONAZEPAM. [Concomitant]
     Active Substance: CLONAZEPAM
  4. VERZENIO [Suspect]
     Active Substance: ABEMACICLIB
     Indication: BREAST CANCER FEMALE
     Route: 048
     Dates: start: 20201016, end: 20201023
  5. AMLODIPINE [Concomitant]
     Active Substance: AMLODIPINE BESYLATE
  6. ONDANSETRON [Concomitant]
     Active Substance: ONDANSETRON
  7. METOPROLOL. [Concomitant]
     Active Substance: METOPROLOL
  8. CELEBREX [Concomitant]
     Active Substance: CELECOXIB

REACTIONS (4)
  - Abdominal pain [None]
  - Nausea [None]
  - Diarrhoea [None]
  - Condition aggravated [None]

NARRATIVE: CASE EVENT DATE: 20201110
